FAERS Safety Report 4933610-3 (Version None)
Quarter: 2006Q1

REPORT INFORMATION
  Report Type: 
  Country: None (occurrence: None)
  Receive Date: 20060111
  Receipt Date: 20050624
  Transmission Date: 20060701
  Serious: Yes (Hospitalization)
  Sender: FDA-Public Use
  Company Number: A001-002-006557

PATIENT
  Age: 49 Year
  Sex: Male
  Weight: 105 kg

DRUGS (14)
  1. ARICEPT [Suspect]
     Indication: MEMORY IMPAIRMENT
     Dosage: UNKNOWN, 1 IN 1 D; ORAL, 5MG, 1 IN 1 D, ORAL
     Route: 048
     Dates: end: 20030101
  2. ARICEPT [Suspect]
     Indication: MEMORY IMPAIRMENT
     Dosage: UNKNOWN, 1 IN 1 D; ORAL, 5MG, 1 IN 1 D, ORAL
     Route: 048
     Dates: start: 20050614, end: 20050601
  3. GEODON [Suspect]
     Indication: SCHIZOPHRENIA
     Dosage: UNKNOWN, ORAL; 120 MG, 40MG AM/80MG PM, ORAL
     Route: 048
     Dates: start: 20030501, end: 20050601
  4. GEODON [Suspect]
     Indication: SCHIZOPHRENIA
     Dosage: UNKNOWN, ORAL; 120 MG, 40MG AM/80MG PM, ORAL
     Route: 048
     Dates: start: 20050601
  5. ACETAMINOPHEN [Concomitant]
  6. ACETAMINOPHEN AND BUTALBITAL AND CAFFEINE [Concomitant]
  7. ZOLMITRIPTAN (ZOLMITRIPTAN) [Concomitant]
  8. DIVALPROEX (VALPROATE SEMISODIUM) [Concomitant]
  9. LISINOPRIL [Concomitant]
  10. DOCUSATE [Concomitant]
  11. OMEPRAZOLE [Concomitant]
  12. COGENTIN [Concomitant]
  13. KLONOPIN [Concomitant]
  14. OXYBUTYNIN [Concomitant]

REACTIONS (3)
  - CHEST PAIN [None]
  - HEART RATE DECREASED [None]
  - WEIGHT DECREASED [None]
